FAERS Safety Report 12500209 (Version 1)
Quarter: 2016Q2

REPORT INFORMATION
  Report Type: Spontaneous
  Country: CA (occurrence: CA)
  Receive Date: 20160627
  Receipt Date: 20160627
  Transmission Date: 20160815
  Serious: Yes (Hospitalization, Other)
  Sender: FDA-Public Use
  Company Number: CA-GLAXOSMITHKLINE-CA2016090972

PATIENT
  Sex: Female

DRUGS (12)
  1. NICORETTE [Suspect]
     Active Substance: NICOTINE
     Dosage: UNK
     Route: 048
     Dates: start: 1983
  2. LOXAPINE. [Concomitant]
     Active Substance: LOXAPINE
     Indication: PSYCHOTIC DISORDER
     Dosage: DOSAGE FORM: UNSPECIFIED, 25 MG/DAY, INTERVAL: 10 DAYS, START DATE: 10 DAYS
     Route: 065
  3. ZOPICLONE [Concomitant]
     Active Substance: ZOPICLONE
     Indication: INSOMNIA
     Dosage: DOSAGE FORM: UNSPECIFIED, 7.5 MG/DAY, INTERVAL: FOR A FEW YEARS
     Route: 065
  4. VITAMIN B3 [Concomitant]
     Active Substance: NIACIN
     Indication: ROUTINE HEALTH MAINTENANCE
     Dosage: DOSAGE FORM: UNSPECIFIED, AS NEEDED, INTERVAL: FOR YEARS
     Route: 065
  5. OMEGA 3 VITAMIN [Concomitant]
     Indication: ROUTINE HEALTH MAINTENANCE
     Dosage: DOSAGE FORM: UNSPECIFIED, 3X A DAY, INTERVAL: FOR YEARS3 CAPSULES INCREASED TO 9 CAPSULES
     Route: 065
  6. B 100 [Concomitant]
     Indication: ROUTINE HEALTH MAINTENANCE
     Dosage: DOSAGE FORM: UNSPECIFIED, AS NEEDED, INTERVAL: FOR YEARS
     Route: 065
  7. MULTIVITAMINS [Concomitant]
     Active Substance: VITAMINS
     Indication: ROUTINE HEALTH MAINTENANCE
     Dosage: DOSAGE FORM: UNSPECIFIED, AS NEEDED, INTERVAL FOR YEARS
     Route: 065
  8. MAGNESIUM [Concomitant]
     Active Substance: MAGNESIUM
     Indication: ROUTINE HEALTH MAINTENANCE
     Dosage: DOSAGE FORM: UNSPECIFIED, AS NEEDED, INTERVAL FOR YEARS
     Route: 065
  9. PALIPERIDONE. [Concomitant]
     Active Substance: PALIPERIDONE
     Indication: PSYCHOTIC DISORDER
     Dosage: DOSAGE FORM: UNSPECIFIED, 75MG/DAY
     Route: 065
  10. NICORETTE [Suspect]
     Active Substance: NICOTINE
     Indication: EX-TOBACCO USER
     Dosage: UNK
     Route: 048
  11. CALCIUM [Concomitant]
     Active Substance: CALCIUM
     Indication: ROUTINE HEALTH MAINTENANCE
     Dosage: DOSAGE FORM: UNSPECIFIED, AS NEEDED, INTERVAL FOR YEARS
     Route: 065
  12. VITAMIN C [Concomitant]
     Active Substance: ASCORBIC ACID
     Indication: ROUTINE HEALTH MAINTENANCE
     Dosage: DOSAGE FORM: UNSPECIFIED, AS NEEDED, INTERVAL FOR YEARS
     Route: 065

REACTIONS (6)
  - Mental disorder [Unknown]
  - Overdose [Unknown]
  - Headache [Unknown]
  - Thinking abnormal [Unknown]
  - Incorrect drug administration duration [Not Recovered/Not Resolved]
  - Nicotine dependence [Not Recovered/Not Resolved]
